FAERS Safety Report 4422110-5 (Version None)
Quarter: 2004Q3

REPORT INFORMATION
  Report Type: 
  Country: None (occurrence: None)
  Receive Date: 20040712
  Receipt Date: 20030721
  Transmission Date: 20050211
  Serious: No
  Sender: FDA-Public Use
  Company Number: TAP2003Q00585

PATIENT
  Sex: Female

DRUGS (1)
  1. PREVACID [Suspect]
     Indication: GASTROOESOPHAGEAL REFLUX DISEASE
     Dosage: 30 MG, 1 IN 1 D, ORAL
     Route: 048
     Dates: start: 20030201, end: 20030201

REACTIONS (2)
  - HYPERSENSITIVITY [None]
  - RASH PRURITIC [None]
